FAERS Safety Report 22332714 (Version 1)
Quarter: 2023Q2

REPORT INFORMATION
  Report Type: Spontaneous
  Country: US (occurrence: US)
  Receive Date: 20230517
  Receipt Date: 20230517
  Transmission Date: 20230722
  Serious: No
  Sender: FDA-Public Use
  Company Number: US-UPSHER-SMITH LABORATORIES, LLC-2023USL00290

PATIENT
  Sex: Male

DRUGS (1)
  1. KLOR-CON [Suspect]
     Active Substance: POTASSIUM CHLORIDE

REACTIONS (2)
  - Abdominal pain upper [Recovered/Resolved]
  - Product administration error [Recovered/Resolved]
